FAERS Safety Report 4311161-7 (Version None)
Quarter: 2004Q1

REPORT INFORMATION
  Report Type: 
  Country: None (occurrence: None)
  Receive Date: 20040302
  Receipt Date: 20040223
  Transmission Date: 20041129
  Serious: Yes (Hospitalization)
  Sender: FDA-Public Use
  Company Number: US-JNJFOC-20040205035

PATIENT
  Age: 59 Year
  Sex: Female
  Weight: 93.441 kg

DRUGS (7)
  1. INFLIXIMAB (INFLIXIMAB, RECOMBINANT) LYOPHILIZED POWDER [Suspect]
     Indication: RHEUMATOID ARTHRITIS
     Dosage: INTRAVENOUS
     Route: 042
     Dates: start: 20000718
  2. ATENOLOL [Concomitant]
  3. ACCUPRIL [Concomitant]
  4. CELEBREX [Concomitant]
  5. ASPIRIN [Concomitant]
  6. LIPITOR [Concomitant]
  7. METHOTREXATE [Concomitant]

REACTIONS (7)
  - AORTIC STENOSIS [None]
  - ARTHRALGIA [None]
  - BACK PAIN [None]
  - MITRAL VALVE INCOMPETENCE [None]
  - PLEURAL EFFUSION [None]
  - PNEUMONITIS [None]
  - TRICUSPID VALVE INCOMPETENCE [None]
